FAERS Safety Report 23851824 (Version 1)
Quarter: 2024Q2

REPORT INFORMATION
  Report Type: Spontaneous
  Country: IT (occurrence: IT)
  Receive Date: 20240514
  Receipt Date: 20240514
  Transmission Date: 20240717
  Serious: Yes (Hospitalization, Other)
  Sender: FDA-Public Use
  Company Number: IT-MINISAL02-983316

PATIENT
  Age: 71 Year
  Sex: Female

DRUGS (4)
  1. AMIODARONE [Suspect]
     Active Substance: AMIODARONE
     Indication: Tachycardia
     Dosage: 200 MILLIGRAM, DAILY (HALF TABLET)
     Route: 048
     Dates: start: 202105
  2. MEXILETINE [Suspect]
     Active Substance: MEXILETINE
     Indication: Ventricular tachycardia
     Dosage: 200 MILLIGRAM, 3 TIMES A DAY(THE DOSAGE IS THEN TEMPORARILY REDUCED TO 2 TABLETS PER DAY AND THEN FI
     Route: 048
     Dates: start: 20231222
  3. LEVOTHYROXINE SODIUM [Concomitant]
     Active Substance: LEVOTHYROXINE SODIUM
     Indication: Hypothyroidism
     Dosage: 50 MILLIGRAM, ONCE A DAY(1 TABLET IN THE MORNING ON EMPTY STOMACH FOR 5 DAYS A WEEK.1 TABLET OF 75 M
     Route: 065
     Dates: start: 20231223
  4. METOPROLOL [Concomitant]
     Active Substance: METOPROLOL
     Indication: Tachycardia
     Dosage: 150 MILLIGRAM, 3 TIMES A DAY
     Route: 048

REACTIONS (11)
  - Hallucination, visual [Not Recovered/Not Resolved]
  - Vomiting [Not Recovered/Not Resolved]
  - Anxiety [Not Recovered/Not Resolved]
  - Hyperhidrosis [Not Recovered/Not Resolved]
  - Bulimia nervosa [Not Recovered/Not Resolved]
  - Flatulence [Not Recovered/Not Resolved]
  - Nausea [Not Recovered/Not Resolved]
  - Fatigue [Not Recovered/Not Resolved]
  - Vertigo [Not Recovered/Not Resolved]
  - Tremor [Not Recovered/Not Resolved]
  - Vision blurred [Recovering/Resolving]

NARRATIVE: CASE EVENT DATE: 20231229
